FAERS Safety Report 8763974 (Version 1)
Quarter: 2012Q4

REPORT INFORMATION
  Report Type: 
  Country: US (occurrence: US)
  Receive Date: 20120831
  Receipt Date: 20120831
  Transmission Date: 20130627
  Serious: Yes (Hospitalization)
  Sender: FDA-Public Use
  Company Number: US-BAYER-2012-088302

PATIENT
  Sex: Female

DRUGS (1)
  1. MIRENA [Suspect]
     Dosage: 20 mcg/24hr, CONT
     Route: 015

REACTIONS (6)
  - Panic disorder [None]
  - Anxiety [None]
  - Weight increased [None]
  - Depression [None]
  - Fatigue [None]
  - Arthralgia [None]
